FAERS Safety Report 8816850 (Version 1)
Quarter: 2012Q4

REPORT INFORMATION
  Report Type: Spontaneous
  Country: US (occurrence: None)
  Receive Date: 20121002
  Receipt Date: 20121002
  Transmission Date: 20130627
  Serious: Yes (Hospitalization)
  Sender: FDA-Public Use
  Company Number: None

PATIENT
  Sex: Male
  Weight: 104.33 kg

DRUGS (1)
  1. ZIPRASIDONE [Suspect]
     Indication: BIPOLAR DISORDER
     Dates: start: 20120822, end: 20120822

REACTIONS (2)
  - Swollen tongue [None]
  - Speech disorder [None]
